FAERS Safety Report 11242183 (Version 1)
Quarter: 2015Q3

REPORT INFORMATION
  Report Type: Spontaneous
  Country: US (occurrence: US)
  Receive Date: 20150707
  Receipt Date: 20150707
  Transmission Date: 20151125
  Serious: No
  Sender: FDA-Public Use
  Company Number: US-ASTRAZENECA-2015SE63409

PATIENT
  Age: 61 Year
  Sex: Male

DRUGS (3)
  1. SYMBICORT [Suspect]
     Active Substance: BUDESONIDE\FORMOTEROL FUMARATE DIHYDRATE
     Indication: CHRONIC OBSTRUCTIVE PULMONARY DISEASE
     Dosage: 160/4.5 MCG 2 PUFFS BID
     Route: 055
     Dates: start: 201407, end: 201506
  2. FLAGYL [Concomitant]
     Active Substance: METRONIDAZOLE\METRONIDAZOLE HYDROCHLORIDE
     Indication: DIVERTICULITIS
  3. LEVAQUIN [Concomitant]
     Active Substance: LEVOFLOXACIN
     Indication: DIVERTICULITIS

REACTIONS (5)
  - Chest discomfort [Recovered/Resolved]
  - Joint swelling [Recovered/Resolved]
  - Intentional product misuse [Unknown]
  - Peripheral swelling [Recovered/Resolved]
  - Chest pain [Recovered/Resolved]
